FAERS Safety Report 20230882 (Version 6)
Quarter: 2022Q2

REPORT INFORMATION
  Report Type: Spontaneous
  Country: PT (occurrence: PT)
  Receive Date: 20211227
  Receipt Date: 20220615
  Transmission Date: 20220720
  Serious: Yes (Other)
  Sender: FDA-Public Use
  Company Number: PT-UCBSA-2021057543

PATIENT
  Age: 62 Year
  Sex: Female
  Weight: 67 kg

DRUGS (3)
  1. NEUPRO [Suspect]
     Active Substance: ROTIGOTINE
     Indication: Product used for unknown indication
     Dosage: 2 MILLIGRAM, ONCE DAILY (QD)
     Route: 062
     Dates: start: 202110, end: 202111
  2. NEUPRO [Suspect]
     Active Substance: ROTIGOTINE
     Dosage: 2 MILLIGRAM, ONCE DAILY (QD)
     Route: 062
     Dates: start: 20220330, end: 20220330
  3. TROLAMINE [Concomitant]
     Active Substance: TROLAMINE
     Indication: Dermatitis allergic
     Dosage: UNK

REACTIONS (5)
  - Dermatitis allergic [Recovered/Resolved]
  - Application site burn [Unknown]
  - Device adhesion issue [Unknown]
  - Circumstance or information capable of leading to device use error [Recovered/Resolved]
  - Intentional product use issue [Unknown]

NARRATIVE: CASE EVENT DATE: 20210101
